FAERS Safety Report 9861029 (Version 2)
Quarter: 2014Q1

REPORT INFORMATION
  Report Type: Spontaneous
  Country: JP (occurrence: JP)
  Receive Date: 20140202
  Receipt Date: 20140202
  Transmission Date: 20141002
  Serious: No
  Sender: FDA-Public Use
  Company Number: JP-ALLERGAN-1302878US

PATIENT
  Age: 90 Year
  Sex: Female

DRUGS (1)
  1. BOTOX [Suspect]
     Indication: PRODUCT USED FOR UNKNOWN INDICATION
     Dosage: 250 UNITS, SINGLE
     Route: 030
     Dates: start: 20130220, end: 20130220

REACTIONS (1)
  - Pyrexia [Recovered/Resolved]
